FAERS Safety Report 17908355 (Version 1)
Quarter: 2020Q2

REPORT INFORMATION
  Report Type: Spontaneous
  Country: US (occurrence: US)
  Receive Date: 20200617
  Receipt Date: 20200617
  Transmission Date: 20200714
  Serious: Yes (Death)
  Sender: FDA-Public Use
  Company Number: US-JNJFOC-20200619059

PATIENT
  Age: 71 Year
  Sex: Male

DRUGS (2)
  1. XARELTO [Suspect]
     Active Substance: RIVAROXABAN
     Indication: THROMBOSIS PROPHYLAXIS
     Route: 048
  2. INSULIN [Concomitant]
     Active Substance: INSULIN NOS

REACTIONS (3)
  - Cerebral haemorrhage [Fatal]
  - Abnormal behaviour [Unknown]
  - Eyelid bleeding [Unknown]

NARRATIVE: CASE EVENT DATE: 202005
